FAERS Safety Report 16653551 (Version 2)
Quarter: 2019Q3

REPORT INFORMATION
  Report Type: Spontaneous
  Country: JP (occurrence: JP)
  Receive Date: 20190731
  Receipt Date: 20190808
  Transmission Date: 20191004
  Serious: Yes (Other)
  Sender: FDA-Public Use
  Company Number: JP-GILEAD-2019-0420688

PATIENT
  Age: 7 Decade
  Sex: Male

DRUGS (2)
  1. VEMLIDY [Suspect]
     Active Substance: TENOFOVIR ALAFENAMIDE FUMARATE
     Indication: HEPATITIS B
     Dosage: UNK
     Route: 065
  2. ENTECAVIR. [Concomitant]
     Active Substance: ENTECAVIR
     Indication: HEPATITIS B
     Dosage: UNK UNK, QOD

REACTIONS (6)
  - Metastases to bone [Unknown]
  - Hepatitis B e antigen positive [Unknown]
  - Hepatitis B surface antigen positive [Unknown]
  - Renal disorder [Unknown]
  - Drug ineffective [Unknown]
  - Prostate cancer [Unknown]
